FAERS Safety Report 17836929 (Version 1)
Quarter: 2020Q2

REPORT INFORMATION
  Report Type: Spontaneous
  Country: JP (occurrence: JP)
  Receive Date: 20200529
  Receipt Date: 20200529
  Transmission Date: 20200714
  Serious: Yes (Other)
  Sender: FDA-Public Use
  Company Number: JP-SUN PHARMACEUTICAL INDUSTRIES LTD-2020RR-248582

PATIENT
  Age: 69 Year
  Sex: Female

DRUGS (4)
  1. ANASTROZOLE. [Suspect]
     Active Substance: ANASTROZOLE
     Indication: BREAST CANCER
     Dosage: UNK
     Route: 065
  2. UFT [Suspect]
     Active Substance: TEGAFUR\URACIL
     Indication: BREAST CANCER
     Dosage: UNK
     Route: 065
  3. UFT [Suspect]
     Active Substance: TEGAFUR\URACIL
     Indication: LUNG NEOPLASM MALIGNANT
  4. ANASTROZOLE. [Suspect]
     Active Substance: ANASTROZOLE
     Indication: LUNG NEOPLASM MALIGNANT

REACTIONS (1)
  - Thrombosis [Unknown]
